FAERS Safety Report 16830205 (Version 2)
Quarter: 2019Q4

REPORT INFORMATION
  Report Type: Spontaneous
  Country: US (occurrence: US)
  Receive Date: 20190919
  Receipt Date: 20191016
  Transmission Date: 20200122
  Serious: Yes (Death, Hospitalization, Other)
  Sender: FDA-Public Use
  Company Number: PHEH2019US038401

PATIENT
  Age: 68 Year
  Sex: Male
  Weight: 75 kg

DRUGS (13)
  1. CYTOXAN [Concomitant]
     Active Substance: CYCLOPHOSPHAMIDE
     Indication: B-CELL DEPLETION THERAPY
     Dosage: 250 MG/M2, UNK
     Route: 042
     Dates: start: 20190904, end: 20190905
  2. MIRALAX [Concomitant]
     Active Substance: POLYETHYLENE GLYCOL 3350
     Indication: CONSTIPATION
     Dosage: 1 DF, PRN
     Route: 048
  3. ZYLOPRIM [Concomitant]
     Active Substance: ALLOPURINOL
     Indication: TUMOUR LYSIS SYNDROME
     Dosage: 300 MG, QD
     Route: 048
     Dates: start: 20190811
  4. DIFLUCAN [Concomitant]
     Active Substance: FLUCONAZOLE
     Indication: NEUTROPENIA
     Dosage: 200 MG, QD
     Route: 048
     Dates: start: 20190719
  5. MAGNESIUM OXIDE. [Concomitant]
     Active Substance: MAGNESIUM OXIDE
     Indication: PRODUCT USED FOR UNKNOWN INDICATION
     Dosage: 400 MG, BID
     Route: 048
  6. SENOKOT [Concomitant]
     Active Substance: SENNOSIDES
     Indication: CONSTIPATION
     Dosage: 2 DF, PRN
     Route: 048
  7. FLUDARABIN [Concomitant]
     Active Substance: FLUDARABINE PHOSPHATE
     Indication: B-CELL DEPLETION THERAPY
     Dosage: 25 MG/M2, UNK
     Route: 042
     Dates: start: 20190904, end: 20190905
  8. KYMRIAH [Suspect]
     Active Substance: TISAGENLECLEUCEL
     Indication: DIFFUSE LARGE B-CELL LYMPHOMA RECURRENT
     Dosage: 3.2X10E8
     Route: 042
     Dates: start: 20190909
  9. LOPRESSOR [Concomitant]
     Active Substance: METOPROLOL TARTRATE
     Indication: HYPERTENSION
     Dosage: 1 DF, BID
     Route: 048
  10. LANTUS [Concomitant]
     Active Substance: INSULIN GLARGINE
     Indication: DIABETES MELLITUS
     Dosage: 6 DF, (INTO SKIN AT BEDTIME)
     Route: 058
  11. BACTRIM DS [Concomitant]
     Active Substance: SULFAMETHOXAZOLE\TRIMETHOPRIM
     Indication: PROPHYLAXIS
     Dosage: 800 MG, QW3 (800-160 MG)
     Route: 048
     Dates: start: 20190814
  12. DEXAMETHASONE. [Concomitant]
     Active Substance: DEXAMETHASONE
     Indication: PRODUCT USED FOR UNKNOWN INDICATION
     Dosage: 10 MG, UNK
     Route: 065
     Dates: start: 20190913
  13. CIPRO [Concomitant]
     Active Substance: CIPROFLOXACIN HYDROCHLORIDE
     Indication: PRODUCT USED FOR UNKNOWN INDICATION
     Dosage: 1 DF, BID
     Route: 048

REACTIONS (30)
  - White blood cell count decreased [Unknown]
  - Platelet count decreased [Unknown]
  - Hypoxia [Unknown]
  - Carbon dioxide decreased [Unknown]
  - Blood lactate dehydrogenase increased [Unknown]
  - Sinus tachycardia [Unknown]
  - Peripheral coldness [Unknown]
  - Blood fibrinogen decreased [Unknown]
  - C-reactive protein increased [Unknown]
  - Red blood cell count decreased [Unknown]
  - Prothrombin time prolonged [Unknown]
  - International normalised ratio increased [Unknown]
  - Blood lactic acid increased [Unknown]
  - Glomerular filtration rate decreased [Unknown]
  - Neutropenia [Unknown]
  - Haemoglobin decreased [Unknown]
  - Abdominal distension [Unknown]
  - Drug ineffective [Unknown]
  - Sepsis [Fatal]
  - Cytokine release syndrome [Recovering/Resolving]
  - Pyrexia [Unknown]
  - Blood urea increased [Unknown]
  - Blood glucose increased [Unknown]
  - Confusional state [Unknown]
  - Blood albumin decreased [Unknown]
  - Blood sodium decreased [Unknown]
  - Pulseless electrical activity [Fatal]
  - Hypotension [Unknown]
  - Serum ferritin increased [Unknown]
  - Infection [Unknown]

NARRATIVE: CASE EVENT DATE: 20190909
